FAERS Safety Report 11333583 (Version 1)
Quarter: 2015Q3

REPORT INFORMATION
  Report Type: Spontaneous
  Country: US (occurrence: US)
  Receive Date: 20150803
  Receipt Date: 20150803
  Transmission Date: 20151125
  Serious: Yes (Other)
  Sender: FDA-Public Use
  Company Number: US-ELI_LILLY_AND_COMPANY-US200711002564

PATIENT
  Sex: Female
  Weight: 94.79 kg

DRUGS (6)
  1. ZYPREXA [Suspect]
     Active Substance: OLANZAPINE
     Dosage: 20 MG, UNK
  2. DEPAKOTE [Concomitant]
     Active Substance: DIVALPROEX SODIUM
     Dates: start: 200511
  3. EFFEXOR [Concomitant]
     Active Substance: VENLAFAXINE HYDROCHLORIDE
     Dates: start: 200412
  4. SEROQUEL [Concomitant]
     Active Substance: QUETIAPINE FUMARATE
     Dates: start: 200511
  5. THORAZINE [Concomitant]
     Active Substance: CHLORPROMAZINE
     Dates: start: 200511
  6. ZYPREXA [Suspect]
     Active Substance: OLANZAPINE
     Dosage: 10 MG, UNK
     Dates: start: 20020606, end: 20021118

REACTIONS (3)
  - Hyperglycaemia [Unknown]
  - Type 2 diabetes mellitus [Not Recovered/Not Resolved]
  - Diabetic coma [Not Recovered/Not Resolved]
